FAERS Safety Report 19294535 (Version 2)
Quarter: 2021Q2

REPORT INFORMATION
  Report Type: Spontaneous
  Country: US (occurrence: US)
  Receive Date: 20210524
  Receipt Date: 20210625
  Transmission Date: 20210717
  Serious: Yes (Hospitalization, Other)
  Sender: FDA-Public Use
  Company Number: US-PFIZER INC-2021499837

PATIENT
  Age: 74 Year
  Sex: Female

DRUGS (4)
  1. EPINEPHRINE. [Concomitant]
     Active Substance: EPINEPHRINE
     Indication: LOCAL ANAESTHESIA
     Dosage: LIDOCAINE 1% WITH EPINEPHRINE 1: 100,000
  2. EPINEPHRINE. [Concomitant]
     Active Substance: EPINEPHRINE
     Dosage: LIDOCAINE 1% WITH EPINEPHRINE 1: 100,000
  3. LIDOCAINE HCL [Suspect]
     Active Substance: LIDOCAINE HYDROCHLORIDE
     Indication: LOCAL ANAESTHESIA
     Dosage: LIDOCAINE 1% WITH EPINEPHRINE 1: 100,000
  4. LIDOCAINE HCL [Suspect]
     Active Substance: LIDOCAINE HYDROCHLORIDE
     Dosage: LIDOCAINE 1% WITH EPINEPHRINE 1: 100,000

REACTIONS (1)
  - Facial paralysis [Recovered/Resolved]
